FAERS Safety Report 8117900-1 (Version None)
Quarter: 2012Q1

REPORT INFORMATION
  Report Type: 
  Country: None (occurrence: None)
  Receive Date: 20120202
  Receipt Date: 20120118
  Transmission Date: 20120608
  Serious: Yes (Death)
  Sender: FDA-Public Use
  Company Number: 2012S1000015

PATIENT
  Age: 13 Year
  Sex: Female

DRUGS (2)
  1. INOMAX [Suspect]
     Indication: VENTILATION PERFUSION MISMATCH
  2. ANTIBIOTICS [Concomitant]

REACTIONS (3)
  - LUNG ABSCESS [None]
  - INSULIN RESISTANCE [None]
  - HYPERTHERMIA MALIGNANT [None]
